FAERS Safety Report 7561459-4 (Version None)
Quarter: 2011Q2

REPORT INFORMATION
  Report Type: 
  Country: None (occurrence: None)
  Receive Date: 20110621
  Receipt Date: 20110325
  Transmission Date: 20111010
  Serious: No
  Sender: FDA-Public Use
  Company Number: US-ASTRAZENECA-2011SE17572

PATIENT
  Age: 79 Year
  Sex: Female

DRUGS (1)
  1. PULMICORT FLEXHALER [Suspect]
     Route: 055

REACTIONS (5)
  - GAIT DISTURBANCE [None]
  - BRONCHITIS [None]
  - FULL BLOOD COUNT DECREASED [None]
  - PNEUMONIA [None]
  - LUNG DISORDER [None]
